FAERS Safety Report 4911690-9 (Version None)
Quarter: 2006Q1

REPORT INFORMATION
  Report Type: 
  Country: None (occurrence: None)
  Receive Date: 20060213
  Receipt Date: 20051128
  Transmission Date: 20060701
  Serious: Yes (Other)
  Sender: FDA-Public Use
  Company Number: 2006017124

PATIENT
  Sex: Female

DRUGS (2)
  1. BEXTRA [Suspect]
     Indication: NECK PAIN
     Dates: start: 20030403
  2. BEXTRA [Suspect]
     Indication: PAIN IN EXTREMITY
     Dates: start: 20030403

REACTIONS (5)
  - ECZEMA [None]
  - INFECTION [None]
  - PSORIASIS [None]
  - SURGERY [None]
  - SUTURE RELATED COMPLICATION [None]
